FAERS Safety Report 12460872 (Version 1)
Quarter: 2016Q2

REPORT INFORMATION
  Report Type: Spontaneous
  Country: US (occurrence: US)
  Receive Date: 20160613
  Receipt Date: 20160613
  Transmission Date: 20160815
  Serious: No
  Sender: FDA-Public Use
  Company Number: ALCN2016US004137

PATIENT
  Sex: Female

DRUGS (1)
  1. PATADAY [Suspect]
     Active Substance: OLOPATADINE HYDROCHLORIDE
     Indication: VISION BLURRED
     Dosage: 1 GTT, PRN
     Route: 047
     Dates: start: 201506, end: 201604

REACTIONS (4)
  - Fatigue [Recovering/Resolving]
  - Product use issue [Recovering/Resolving]
  - Condition aggravated [Recovering/Resolving]
  - Vision blurred [Recovering/Resolving]
